FAERS Safety Report 24374897 (Version 1)
Quarter: 2024Q3

REPORT INFORMATION
  Report Type: Spontaneous
  Country: CA (occurrence: CA)
  Receive Date: 20240927
  Receipt Date: 20240927
  Transmission Date: 20241017
  Serious: Yes (Life-Threatening, Hospitalization)
  Sender: TEVA
  Company Number: CA-TEVA-VS-3245814

PATIENT
  Age: 6 Year
  Sex: Male

DRUGS (4)
  1. CARBAMAZEPINE [Suspect]
     Active Substance: CARBAMAZEPINE
     Indication: Product used for unknown indication
     Route: 065
  2. MAXILENE [Concomitant]
     Indication: Product used for unknown indication
     Dosage: DESCRIPTION: MAXILENE 4
  3. LEVETIRACETAM [Concomitant]
     Active Substance: LEVETIRACETAM
     Indication: Product used for unknown indication
     Route: 065
  4. LORAZEPAM [Concomitant]
     Active Substance: LORAZEPAM
     Indication: Product used for unknown indication
     Route: 065

REACTIONS (7)
  - Drug hypersensitivity [Recovering/Resolving]
  - Hepatic enzyme increased [Recovering/Resolving]
  - Petechiae [Recovering/Resolving]
  - Inflammatory marker increased [Recovering/Resolving]
  - Pyrexia [Recovering/Resolving]
  - Hepatosplenomegaly [Recovering/Resolving]
  - Rash maculo-papular [Recovering/Resolving]
